FAERS Safety Report 7182911-X (Version None)
Quarter: 2010Q4

REPORT INFORMATION
  Report Type: 
  Country: None (occurrence: None)
  Receive Date: 20101209
  Receipt Date: 20101123
  Transmission Date: 20110411
  Serious: Yes (Hospitalization)
  Sender: FDA-Public Use
  Company Number: 2010000371

PATIENT
  Age: 68 Year

DRUGS (2)
  1. ERLOTINIB HYDROCHLORIDE [Suspect]
     Indication: NON-SMALL CELL LUNG CANCER
     Dosage: ORAL
     Route: 048
     Dates: start: 20091224, end: 20100125
  2. DALTEPARIN SODIUM [Concomitant]

REACTIONS (1)
  - RETROPERITONEAL HAEMORRHAGE [None]
